FAERS Safety Report 7791617-5 (Version None)
Quarter: 2011Q3

REPORT INFORMATION
  Report Type: 
  Country: None (occurrence: None)
  Receive Date: 20110930
  Receipt Date: 20110930
  Transmission Date: 20111222
  Serious: Yes (Other)
  Sender: FDA-Public Use
  Company Number: None

PATIENT
  Age: 65 Year
  Sex: Male
  Weight: 58.2 kg

DRUGS (1)
  1. FORTEO [Suspect]
     Indication: OSTEOPOROSIS
     Dosage: 20 MICROGRAMS DAILY INJECTION
     Dates: start: 20110803, end: 20110816

REACTIONS (3)
  - TESTICULAR PAIN [None]
  - FEELING ABNORMAL [None]
  - NAUSEA [None]
